FAERS Safety Report 9820088 (Version 1)
Quarter: 2014Q1

REPORT INFORMATION
  Report Type: Spontaneous
  Country: US (occurrence: US)
  Receive Date: 20140116
  Receipt Date: 20140116
  Transmission Date: 20141002
  Serious: Yes (Other)
  Sender: FDA-Public Use
  Company Number: US-ASTRAZENECA-2014SE01938

PATIENT
  Age: 61 Year
  Sex: Female
  Weight: 55.8 kg

DRUGS (7)
  1. METOPROLOL SUCCINATE [Suspect]
     Indication: ANGINA PECTORIS
     Route: 048
     Dates: start: 201306, end: 201310
  2. METOPROLOL SUCCINATE [Suspect]
     Indication: ANGINA PECTORIS
     Dosage: 2 TABLET DAILY
     Route: 048
     Dates: start: 201310, end: 201311
  3. METOPROLOL SUCCINATE [Suspect]
     Indication: ANGINA PECTORIS
     Dosage: 1.5 TABLET DAILY
     Route: 048
     Dates: start: 201310, end: 201311
  4. METOPROLOL SUCCINATE [Suspect]
     Indication: ANGINA PECTORIS
     Route: 048
     Dates: start: 201311, end: 201312
  5. METOPROLOL SUCCINATE [Suspect]
     Indication: ANGINA PECTORIS
     Route: 048
     Dates: start: 201312
  6. XANAX [Concomitant]
     Indication: ANXIETY
     Route: 048
  7. XANAX [Concomitant]
     Indication: ANXIETY
     Route: 048

REACTIONS (10)
  - Blindness [Unknown]
  - Loss of consciousness [Unknown]
  - Heart rate increased [Unknown]
  - Trichorrhexis [Unknown]
  - Blood pressure increased [Unknown]
  - Hypotension [Recovering/Resolving]
  - Peripheral coldness [Unknown]
  - Dizziness [Recovering/Resolving]
  - Alopecia [Unknown]
  - Intentional drug misuse [Unknown]
